FAERS Safety Report 6051991-7 (Version None)
Quarter: 2009Q1

REPORT INFORMATION
  Report Type: 
  Country: None (occurrence: None)
  Receive Date: 20090121
  Receipt Date: 20080313
  Transmission Date: 20090719
  Serious: Yes (Other)
  Sender: FDA-Public Use
  Company Number: HQWYE207617JUL04

PATIENT
  Age: 58 Year
  Sex: Female
  Weight: 68.1 kg

DRUGS (4)
  1. PREMPRO [Suspect]
     Indication: HORMONE REPLACEMENT THERAPY
     Dosage: ORAL
     Route: 048
     Dates: start: 19980101, end: 20020101
  2. PREMPRO [Suspect]
     Indication: HOT FLUSH
     Dosage: ORAL
     Route: 048
     Dates: start: 19980101, end: 20020101
  3. PREMPRO [Suspect]
     Indication: NIGHT SWEATS
     Dosage: ORAL
     Route: 048
     Dates: start: 19980101, end: 20020101
  4. TRICOR [Concomitant]

REACTIONS (1)
  - BREAST CANCER [None]
